FAERS Safety Report 24756060 (Version 4)
Quarter: 2025Q1

REPORT INFORMATION
  Report Type: Spontaneous
  Country: US (occurrence: US)
  Receive Date: 20241219
  Receipt Date: 20250128
  Transmission Date: 20250409
  Serious: Yes (Other)
  Sender: TAKEDA
  Company Number: US-TAKEDA-2024TUS125269

PATIENT

DRUGS (1)
  1. VYVANSE [Suspect]
     Active Substance: LISDEXAMFETAMINE DIMESYLATE
     Indication: Product used for unknown indication

REACTIONS (7)
  - Mental impairment [Unknown]
  - Suicidal ideation [Recovered/Resolved]
  - Mental disorder [Recovered/Resolved]
  - Pain [Unknown]
  - Anxiety [Recovered/Resolved]
  - Headache [Unknown]
  - Depression [Recovered/Resolved]
